FAERS Safety Report 4481275-X (Version None)
Quarter: 2004Q4

REPORT INFORMATION
  Report Type: 
  Country: None (occurrence: None)
  Receive Date: 20041021
  Receipt Date: 20040607
  Transmission Date: 20050328
  Serious: Yes (Death, Congenital Anomaly, Other)
  Sender: FDA-Public Use
  Company Number: GB-BRISTOL-MYERS SQUIBB COMPANY-12607933

PATIENT
  Sex: Female
  Weight: 1 kg

DRUGS (4)
  1. VIDEX [Suspect]
     Dosage: EXPOSURE BEGAN PRIOR TO CONCEPTION
     Route: 064
  2. VIRAMUNE [Suspect]
     Dosage: EXPOSURE BEGAN PRIOR TO CONCEPTION
     Route: 064
  3. VIRACEPT [Suspect]
     Dosage: EXPOSURE BEGAN PRIOR TO CONCEPTION
     Route: 064
  4. FOLIC ACID [Concomitant]
     Route: 064

REACTIONS (11)
  - ABORTION INDUCED [None]
  - CONGENITAL ATRIAL SEPTAL DEFECT [None]
  - CONGENITAL PULMONARY VALVE ATRESIA [None]
  - CONGENITAL TRICUSPID VALVE ATRESIA [None]
  - CONGENITAL TRICUSPID VALVE STENOSIS [None]
  - DRUG EXPOSURE DURING PREGNANCY [None]
  - HEART DISEASE CONGENITAL [None]
  - INTRA-UTERINE DEATH [None]
  - PREGNANCY [None]
  - VENTRICULAR HYPERTROPHY [None]
  - VENTRICULAR HYPOPLASIA [None]
